FAERS Safety Report 20128024 (Version 1)
Quarter: 2021Q4

REPORT INFORMATION
  Report Type: Spontaneous
  Country: US (occurrence: None)
  Receive Date: 20211129
  Receipt Date: 20211129
  Transmission Date: 20220303
  Serious: No
  Sender: FDA-Public Use
  Company Number: US-ROCHE-2844714

PATIENT
  Sex: Female

DRUGS (4)
  1. HERCEPTIN [Suspect]
     Active Substance: TRASTUZUMAB
     Indication: Breast cancer
     Route: 041
     Dates: start: 2013
  2. XELODA [Concomitant]
     Active Substance: CAPECITABINE
     Route: 048
  3. TYKERB [Concomitant]
     Active Substance: LAPATINIB DITOSYLATE
  4. FEMARA [Concomitant]
     Active Substance: LETROZOLE

REACTIONS (2)
  - Sensitive skin [Not Recovered/Not Resolved]
  - Dizziness [Unknown]
